FAERS Safety Report 5578423-7 (Version None)
Quarter: 2007Q4

REPORT INFORMATION
  Report Type: 
  Country: None (occurrence: None)
  Receive Date: 20071231
  Receipt Date: 20071220
  Transmission Date: 20080405
  Serious: Yes (Other)
  Sender: FDA-Public Use
  Company Number: US-PFIZER INC-2007107419

PATIENT
  Sex: Female

DRUGS (5)
  1. LYRICA [Suspect]
     Indication: BACK PAIN
     Route: 048
  2. METHADONE HCL [Concomitant]
  3. PREMARIN [Concomitant]
  4. PROTONIX [Concomitant]
  5. CELEBREX [Concomitant]

REACTIONS (2)
  - BLEPHAROSPASM [None]
  - HYPOAESTHESIA FACIAL [None]
